FAERS Safety Report 14200607 (Version 1)
Quarter: 2017Q4

REPORT INFORMATION
  Report Type: Spontaneous
  Country: GR (occurrence: GR)
  Receive Date: 20171117
  Receipt Date: 20171117
  Transmission Date: 20180321
  Serious: Yes (Other)
  Sender: FDA-Public Use
  Company Number: GR-PFIZER INC-2017487279

PATIENT
  Age: 77 Year
  Sex: Male

DRUGS (2)
  1. METHOTREXATE SODIUM. [Suspect]
     Active Substance: METHOTREXATE SODIUM
     Indication: RHEUMATOID ARTHRITIS
     Dosage: 5 MG, 2X/WEEK (EVERY SATURDAY AND SUNDAY)
     Dates: start: 201710, end: 201711
  2. PREZOLON [Suspect]
     Active Substance: PREDNISOLONE
     Indication: RHEUMATOID ARTHRITIS
     Dosage: UNK

REACTIONS (4)
  - Blood pressure increased [Recovered/Resolved]
  - Dyspnoea [Recovering/Resolving]
  - Chest pain [Recovering/Resolving]
  - Pain in extremity [Unknown]
